FAERS Safety Report 4873050-9 (Version None)
Quarter: 2005Q4

REPORT INFORMATION
  Report Type: 
  Country: None (occurrence: None)
  Receive Date: 20051201
  Receipt Date: 20050815
  Transmission Date: 20060501
  Serious: No
  Sender: FDA-Public Use
  Company Number: 2005PV001231

PATIENT
  Age: 75 Year
  Sex: Female
  Weight: 83.9154 kg

DRUGS (7)
  1. BYETTA [Suspect]
     Indication: DIABETES MELLITUS NON-INSULIN-DEPENDENT
     Dosage: 10 MCG; BID; SC
     Route: 058
     Dates: start: 20050710
  2. AMARYL [Concomitant]
  3. AVANDIA [Concomitant]
  4. ARICEPT [Concomitant]
  5. SYNTHROID [Concomitant]
  6. LIPITOR [Concomitant]
  7. DITROPAN [Concomitant]

REACTIONS (6)
  - CHILLS [None]
  - DECREASED APPETITE [None]
  - DYSGEUSIA [None]
  - FEELING ABNORMAL [None]
  - NAUSEA [None]
  - WEIGHT DECREASED [None]
